FAERS Safety Report 23270609 (Version 2)
Quarter: 2023Q4

REPORT INFORMATION
  Report Type: Spontaneous
  Country: US (occurrence: US)
  Receive Date: 20231207
  Receipt Date: 20231222
  Transmission Date: 20240109
  Serious: Yes (Hospitalization, Other)
  Sender: FDA-Public Use
  Company Number: None

PATIENT
  Age: 15 Year
  Sex: Male

DRUGS (14)
  1. FLUOXETINE [Interacting]
     Active Substance: FLUOXETINE HYDROCHLORIDE
     Indication: Schizophrenia
     Dosage: 40 MILLIGRAM, QD, 40 MG IN THE MORNING, 20 MG IN THE EVENING
     Route: 065
  2. FLUOXETINE [Interacting]
     Active Substance: FLUOXETINE HYDROCHLORIDE
     Indication: Schizophrenia
     Dosage: 20 MILLIGRAM, QD, 40 MG IN THE MORNING, 20 MG IN THE EVENING
     Route: 065
  3. FLUOXETINE [Interacting]
     Active Substance: FLUOXETINE HYDROCHLORIDE
     Dosage: 40 MILLIGRAM, QD, DECRESED TO 40 MG DAILY, DAY 5
     Route: 065
  4. CLOZAPINE [Interacting]
     Active Substance: CLOZAPINE
     Indication: Schizophrenia
     Dosage: 200 MILLIGRAM, QD; 200 MG IN THE MORNING, 100 MG IN THE AFTERNOON, 250 MG IN THE EVENING (PRIOR-TO-A
     Route: 065
  5. CLOZAPINE [Interacting]
     Active Substance: CLOZAPINE
     Indication: Schizophrenia
     Dosage: 50 MILLIGRAM, BID, DECREASED TO 50 MG TWICE DAILY, DAY 5
     Route: 065
  6. CLOZAPINE [Interacting]
     Active Substance: CLOZAPINE
     Dosage: 50 MILLIGRAM, QD, IN THE EVENING, DECREASED TO 100 MG IN THE MORNING, 50 MG IN EVENING, DAY 4
     Route: 065
  7. CLOZAPINE [Interacting]
     Active Substance: CLOZAPINE
     Dosage: 100 MILLIGRAM, QD, IN MORNING,  DECREASED TO 100 MG IN THE MORNING, 200 MG IN EVENING, DAY 2
     Route: 065
  8. CLOZAPINE [Interacting]
     Active Substance: CLOZAPINE
     Dosage: 200 MILLIGRAM, QD, IN THE EVENING, DECREASED TO 100 MG IN THE MORNING, 200 MG IN EVENING, DAY 2
     Route: 065
  9. CLOZAPINE [Interacting]
     Active Substance: CLOZAPINE
     Dosage: 100 MILLIGRAM, QD, IN THE AFTERNOON, DECREASED TO 100 MG IN THE MORNING, 50 MG IN EVENING, DAY 4
     Route: 065
  10. CLOZAPINE [Interacting]
     Active Substance: CLOZAPINE
     Dosage: 200 MILLIGRAM, QD, IN MORNING, 200 MG IN THE MORNING, OTHER DOSES HELD, DAY 1
     Route: 065
  11. CLOZAPINE [Interacting]
     Active Substance: CLOZAPINE
     Dosage: 250 MILLIGRAM, QD; 200 MG IN THE MORNING, 100 MG IN THE AFTERNOON, 250 MG IN THE EVENING (PRIOR-TO-A
     Route: 065
  12. CLOZAPINE [Interacting]
     Active Substance: CLOZAPINE
     Dosage: 100 MILLIGRAM, QD, 200 MG IN THE MORNING, 100 MG IN THE AFTERNOON, 250 MG IN THE EVENING (PRIOR-TO-A
     Route: 065
  13. ZIPRASIDONE [Interacting]
     Active Substance: ZIPRASIDONE
     Indication: Schizophrenia
     Dosage: 40 MILLIGRAM, BID
     Route: 065
  14. ZIPRASIDONE [Interacting]
     Active Substance: ZIPRASIDONE
     Indication: Schizophrenia
     Dosage: 20 MILLIGRAM, BID, DECREASED DAY 1
     Route: 065

REACTIONS (6)
  - Drug interaction [Recovered/Resolved]
  - Malignant catatonia [Recovered/Resolved]
  - Antipsychotic drug level increased [Recovered/Resolved]
  - Delirium [Recovered/Resolved]
  - Delirium [Recovered/Resolved]
  - Off label use [Unknown]
